FAERS Safety Report 11360910 (Version 2)
Quarter: 2015Q3

REPORT INFORMATION
  Report Type: Spontaneous
  Country: CH (occurrence: CH)
  Receive Date: 20150810
  Receipt Date: 20150923
  Transmission Date: 20151125
  Serious: Yes (Death, Life-Threatening, Other)
  Sender: FDA-Public Use
  Company Number: CH-PFIZER INC-2015261062

PATIENT
  Age: 91 Year
  Sex: Female
  Weight: 48.7 kg

DRUGS (29)
  1. TOVIAZ [Suspect]
     Active Substance: FESOTERODINE FUMARATE
     Indication: URGE INCONTINENCE
     Dosage: UNK
     Dates: start: 20150526, end: 20150530
  2. LYRICA [Concomitant]
     Active Substance: PREGABALIN
     Indication: PAIN
     Dosage: 50 MG, 1X/DAY
     Route: 048
     Dates: start: 20150608, end: 20150611
  3. RESONIUM-A [Concomitant]
     Indication: HYPERKALAEMIA
     Dosage: 15 G, 1X/DAY
     Route: 048
     Dates: start: 20150530, end: 20150601
  4. ARIXTRA [Concomitant]
     Active Substance: FONDAPARINUX SODIUM
     Dosage: 2.5 MG, 1X/DAY, EVENING
     Route: 058
  5. LYRICA [Concomitant]
     Active Substance: PREGABALIN
     Dosage: 100 MG, 2X/DAY
     Route: 048
     Dates: start: 20150618, end: 20150624
  6. TRAMAL [Concomitant]
     Active Substance: TRAMADOL
     Dosage: 25 MG, 3X/DAY
     Route: 048
     Dates: start: 20150619, end: 20150622
  7. MOVICOL [Concomitant]
     Active Substance: POLYETHYLENE GLYCOL 3350\POTASSIUM CHLORIDE\SODIUM BICARBONATE\SODIUM CHLORIDE
     Indication: CONSTIPATION
     Dosage: 1 DF, 2X/DAY (MAX)
     Route: 048
     Dates: start: 20150609, end: 20150619
  8. COVERSUM N [Concomitant]
     Active Substance: PERINDOPRIL
     Indication: HYPERTENSION
     Dosage: 5 MG, 1X/DAY
     Route: 048
     Dates: end: 20150617
  9. LYRICA [Concomitant]
     Active Substance: PREGABALIN
     Dosage: 100 MG, 2X/DAY
     Route: 048
     Dates: start: 20150626, end: 20150629
  10. LYRICA [Concomitant]
     Active Substance: PREGABALIN
     Dosage: 50 MG, 2X/DAY
     Dates: start: 20150701, end: 20150702
  11. PALEXIA [Concomitant]
     Active Substance: TAPENTADOL HYDROCHLORIDE
     Indication: PAIN
     Dosage: 25 MG, 2X/DAY
     Route: 048
     Dates: start: 20150624, end: 20150625
  12. ANXIOLIT [Concomitant]
     Active Substance: OXAZEPAM
     Indication: ANXIETY DISORDER
     Dosage: 7.5 MG, AS NEEDED
     Route: 048
     Dates: start: 20150617, end: 20150706
  13. TOVIAZ [Suspect]
     Active Substance: FESOTERODINE FUMARATE
     Dosage: 4 MG, 1X/DAY
     Route: 048
     Dates: start: 20150611, end: 20150617
  14. TRAMAL [Concomitant]
     Active Substance: TRAMADOL
     Dosage: 50 MG, 3X/DAY
     Dates: start: 20150622, end: 20150624
  15. BUPRENORPHINE HYDROCHLORIDE. [Concomitant]
     Active Substance: BUPRENORPHINE HYDROCHLORIDE
     Dosage: 0.1 MG, 3X/DAY
     Route: 060
     Dates: start: 20150618, end: 20150619
  16. LYRICA [Concomitant]
     Active Substance: PREGABALIN
     Dosage: 50 MG, 2X/DAY
     Route: 048
     Dates: start: 20150611, end: 20150618
  17. TRAMAL [Concomitant]
     Active Substance: TRAMADOL
     Dosage: 25 MG, 3X/DAY
     Route: 048
     Dates: start: 20150531, end: 20150604
  18. BUPRENORPHINE HYDROCHLORIDE. [Concomitant]
     Active Substance: BUPRENORPHINE HYDROCHLORIDE
     Dosage: 0.2 MG, 3X/DAY
     Route: 060
     Dates: start: 20150614, end: 20150616
  19. LYRICA [Concomitant]
     Active Substance: PREGABALIN
     Dosage: 150 MG, 2X/DAY
     Route: 048
     Dates: start: 20150624, end: 20150626
  20. PALEXIA [Concomitant]
     Active Substance: TAPENTADOL HYDROCHLORIDE
     Dosage: 25 MG, 3X/DAY
     Route: 048
     Dates: start: 20150625, end: 20150626
  21. TRAMAL [Concomitant]
     Active Substance: TRAMADOL
     Indication: PAIN
     Dosage: 25 MG, 4X/DAY
     Route: 048
     Dates: end: 20150531
  22. BUPRENORPHINE. [Concomitant]
     Active Substance: BUPRENORPHINE
     Indication: PAIN
     Dosage: 0.1 MG, 3X/DAY
     Dates: start: 20150608, end: 20150613
  23. CLEXANE [Concomitant]
     Active Substance: ENOXAPARIN SODIUM
     Indication: THROMBOSIS PROPHYLAXIS
     Dosage: 40 MG, 1X/DAY
     Route: 058
     Dates: start: 20150531, end: 20150612
  24. DAFALGAN [Concomitant]
     Active Substance: ACETAMINOPHEN
     Indication: PAIN
     Dosage: 1 G, 3X/DAY (MAX)
     Route: 048
     Dates: end: 20150624
  25. TRAMAL [Concomitant]
     Active Substance: TRAMADOL
     Dosage: 50 MG, 3X/DAY
     Route: 048
     Dates: start: 20150604, end: 20150608
  26. MOTILIUM [Concomitant]
     Active Substance: DOMPERIDONE
     Indication: NAUSEA
     Dosage: 10 MG, AS NEEDED
     Route: 060
     Dates: start: 20150610, end: 20150610
  27. BUPRENORPHINE. [Concomitant]
     Active Substance: BUPRENORPHINE
     Dosage: 0.2 MG, 3X/DAY
     Dates: start: 20150614, end: 20150618
  28. LYRICA [Concomitant]
     Active Substance: PREGABALIN
     Dosage: 75 MG, 2X/DAY
     Route: 048
     Dates: start: 20150629, end: 20150701
  29. BUPRENORPHINE HYDROCHLORIDE. [Concomitant]
     Active Substance: BUPRENORPHINE HYDROCHLORIDE
     Indication: PAIN
     Dosage: 0.1 MG, 3X/DAY
     Route: 060
     Dates: start: 20150608, end: 20150614

REACTIONS (2)
  - Death [Fatal]
  - Ventricular tachycardia [Recovered/Resolved]

NARRATIVE: CASE EVENT DATE: 20150617
